FAERS Safety Report 15762801 (Version 1)
Quarter: 2018Q4

REPORT INFORMATION
  Report Type: Spontaneous
  Country: GB (occurrence: GB)
  Receive Date: 20181226
  Receipt Date: 20181226
  Transmission Date: 20190205
  Serious: Yes (Hospitalization)
  Sender: FDA-Public Use
  Company Number: GB-PFIZER INC-409997

PATIENT
  Age: 25 Year
  Sex: Male

DRUGS (3)
  1. PREDNISOLONE. [Concomitant]
     Active Substance: PREDNISOLONE
     Dosage: UNK
  2. REMICADE [Suspect]
     Active Substance: INFLIXIMAB
     Indication: CROHN^S DISEASE
     Dosage: 5 MG/KG,EVERY 8 WEEKS
     Route: 042
     Dates: start: 200412, end: 200805
  3. METHOTREXATE SODIUM. [Suspect]
     Active Substance: METHOTREXATE SODIUM
     Indication: CROHN^S DISEASE
     Dosage: 25 MG,FREQ: 1 WEEK
     Route: 030
     Dates: start: 200607, end: 200805

REACTIONS (1)
  - Meningitis listeria [Recovered/Resolved]

NARRATIVE: CASE EVENT DATE: 20080529
